FAERS Safety Report 11116245 (Version 1)
Quarter: 2015Q2

REPORT INFORMATION
  Report Type: Spontaneous
  Country: None (occurrence: None)
  Receive Date: 20150514
  Receipt Date: 20150514
  Transmission Date: 20150821
  Serious: Yes (Hospitalization)
  Sender: FDA-Public Use
  Company Number: None

PATIENT
  Age: 63 Year
  Sex: Female
  Weight: 70.31 kg

DRUGS (5)
  1. COUMADIN [Concomitant]
     Active Substance: WARFARIN SODIUM
  2. PROPOFOL. [Suspect]
     Active Substance: PROPOFOL
  3. VITAMIN D [Concomitant]
     Active Substance: CHOLECALCIFEROL
  4. RANITIDINE [Concomitant]
     Active Substance: RANITIDINE\RANITIDINE HYDROCHLORIDE
  5. FOXOMAX [Concomitant]

REACTIONS (3)
  - Vomiting [None]
  - Migraine [None]
  - Injection site pain [None]

NARRATIVE: CASE EVENT DATE: 20150511
